FAERS Safety Report 4526759-0 (Version None)
Quarter: 2004Q4

REPORT INFORMATION
  Report Type: 
  Country: None (occurrence: None)
  Receive Date: 20041213
  Receipt Date: 20041202
  Transmission Date: 20050328
  Serious: Yes (Other)
  Sender: FDA-Public Use
  Company Number: 200415828BCC

PATIENT
  Sex: Female
  Weight: 79.8331 kg

DRUGS (5)
  1. ORIGINAL ALKA-SELTZER TABLETS [Suspect]
     Dosage: 650 MG, IRR, ORAL
     Route: 048
     Dates: start: 20000101
  2. COUMADIN [Concomitant]
  3. DIAMOX [Concomitant]
  4. CALCIUM WITH VITAMIN D [Concomitant]
  5. PROTONIX [Concomitant]

REACTIONS (4)
  - DRUG DEPENDENCE [None]
  - HEADACHE [None]
  - MOOD ALTERED [None]
  - PAIN [None]
